FAERS Safety Report 21098856 (Version 3)
Quarter: 2023Q2

REPORT INFORMATION
  Report Type: Report from Study
  Country: JP (occurrence: JP)
  Receive Date: 20220719
  Receipt Date: 20230622
  Transmission Date: 20230722
  Serious: Yes (Death, Other)
  Sender: FDA-Public Use
  Company Number: JP-ASTELLAS-2022JP004710

PATIENT
  Age: 69 Year
  Sex: Female
  Weight: 37.9 kg

DRUGS (6)
  1. ENFORTUMAB VEDOTIN [Suspect]
     Active Substance: ENFORTUMAB VEDOTIN
     Indication: Bladder cancer
     Dosage: 1.25 MG/KG, ONCE WEEKLY, ADMINISTRATION FOR 3 CONSECUTIVE WEEKS AND INTERRUPTION FOR WEEK 4
     Route: 041
     Dates: start: 20220126, end: 20220311
  2. ENFORTUMAB VEDOTIN [Suspect]
     Active Substance: ENFORTUMAB VEDOTIN
     Dosage: 1.25 MG/KG, ONCE WEEKLY, ADMINISTRATION FOR 3 CONSECUTIVE WEEKS AND INTERRUPTION FOR WEEK 4
     Route: 041
     Dates: start: 20220329, end: 20220412
  3. ENFORTUMAB VEDOTIN [Suspect]
     Active Substance: ENFORTUMAB VEDOTIN
     Dosage: 1.25 MG/KG, ONCE WEEKLY, ADMINISTRATION FOR 3 CONSECUTIVE WEEKS AND INTERRUPTION FOR WEEK 4
     Route: 041
     Dates: start: 20220513, end: 20220520
  4. PEMBROLIZUMAB [Concomitant]
     Active Substance: PEMBROLIZUMAB
     Indication: Transitional cell carcinoma
     Dosage: UNK UNK, UNKNOWN FREQ.
     Route: 065
     Dates: start: 20211004, end: 20220105
  5. GLYCOSAMINOGLYCANS [Concomitant]
     Active Substance: GLYCOSAMINOGLYCANS
     Indication: Pruritus
     Dosage: AS NEEDED, UNKNOWN FREQ.
     Route: 050
     Dates: start: 20220216, end: 20220317
  6. EURAX [Concomitant]
     Active Substance: CROTAMITON
     Indication: Pruritus
     Dosage: AS NEEDED, AS NEEDED
     Route: 050
     Dates: start: 20220318, end: 20220524

REACTIONS (6)
  - Anaemia [Unknown]
  - Taste disorder [Not Recovered/Not Resolved]
  - Alopecia [Not Recovered/Not Resolved]
  - Malignant neoplasm progression [Fatal]
  - Pruritus [Recovering/Resolving]
  - Fatigue [Recovering/Resolving]

NARRATIVE: CASE EVENT DATE: 20220216
